FAERS Safety Report 7322606-2 (Version None)
Quarter: 2011Q1

REPORT INFORMATION
  Report Type: 
  Country: None (occurrence: None)
  Receive Date: 20110301
  Receipt Date: 20110224
  Transmission Date: 20110831
  Serious: No
  Sender: FDA-Public Use
  Company Number: US-PFIZER INC-2011041685

PATIENT
  Sex: Female

DRUGS (5)
  1. PRILOSEC [Concomitant]
     Dosage: UNK
  2. EXCEDRIN (MIGRAINE) [Concomitant]
     Dosage: UNK
  3. PEPCID [Concomitant]
     Dosage: UNK
  4. NEURONTIN [Suspect]
     Indication: PAIN PROPHYLAXIS
     Dosage: UNK
  5. FIORICET [Concomitant]
     Dosage: UNK

REACTIONS (1)
  - BLOOD PRESSURE INCREASED [None]
